FAERS Safety Report 4973730-0 (Version None)
Quarter: 2006Q2

REPORT INFORMATION
  Report Type: 
  Country: None (occurrence: None)
  Receive Date: 20060414
  Receipt Date: 20051207
  Transmission Date: 20061013
  Serious: Yes (Hospitalization, Disabling)
  Sender: FDA-Public Use
  Company Number: US-MERCK-0512USA01441

PATIENT
  Age: 61 Year
  Sex: Male
  Weight: 86 kg

DRUGS (2)
  1. VIOXX [Suspect]
     Indication: ARTHRALGIA
     Route: 048
     Dates: start: 20000812, end: 20040701
  2. TYLENOL (CAPLET) [Concomitant]
     Route: 065

REACTIONS (9)
  - BACK DISORDER [None]
  - DEPRESSED LEVEL OF CONSCIOUSNESS [None]
  - DIABETES MELLITUS [None]
  - DIARRHOEA [None]
  - LOSS OF CONSCIOUSNESS [None]
  - MENTAL STATUS CHANGES [None]
  - MYOCARDIAL INFARCTION [None]
  - SYNCOPE [None]
  - VOMITING [None]
